FAERS Safety Report 8190680-X (Version None)
Quarter: 2012Q1

REPORT INFORMATION
  Report Type: 
  Country: None (occurrence: None)
  Receive Date: 20120307
  Receipt Date: 20120221
  Transmission Date: 20120608
  Serious: Yes (Other)
  Sender: FDA-Public Use
  Company Number: JP-ROCHE-1016445

PATIENT
  Sex: Female
  Weight: 41 kg

DRUGS (14)
  1. HERCEPTIN [Suspect]
     Indication: METASTATIC GASTRIC CANCER
     Route: 041
     Dates: start: 20110823, end: 20110823
  2. DEXAMETHASONE SODIUM PHOSPHATE [Concomitant]
     Route: 042
     Dates: start: 20111020, end: 20111023
  3. XELODA [Suspect]
     Indication: METASTATIC GASTRIC CANCER
     Route: 048
     Dates: start: 20111019, end: 20111101
  4. HERCEPTIN [Suspect]
     Route: 041
     Dates: start: 20111019, end: 20111019
  5. EMEND [Concomitant]
     Route: 048
     Dates: start: 20111020, end: 20111021
  6. GASMOTIN [Concomitant]
     Route: 048
     Dates: start: 20111019, end: 20111024
  7. HERCEPTIN [Suspect]
     Route: 041
     Dates: start: 20110915, end: 20110915
  8. LORAZEPAM [Concomitant]
     Route: 048
     Dates: start: 20111019, end: 20111024
  9. HERCEPTIN [Suspect]
     Route: 041
     Dates: start: 20111121, end: 20111121
  10. ALOXI [Concomitant]
     Route: 042
     Dates: start: 20111019, end: 20111019
  11. LASIX [Concomitant]
     Route: 042
     Dates: start: 20111019, end: 20111021
  12. LANSOPRAZOLE [Concomitant]
     Route: 048
     Dates: start: 20111019
  13. DEXAMETHASONE SODIUM PHOSPHATE [Concomitant]
     Route: 042
     Dates: start: 20111019, end: 20111019
  14. EMEND [Concomitant]
     Route: 048
     Dates: start: 20111019, end: 20111019

REACTIONS (3)
  - HYPERTENSION [None]
  - SINUS BRADYCARDIA [None]
  - HEADACHE [None]
